FAERS Safety Report 6184075-8 (Version None)
Quarter: 2009Q2

REPORT INFORMATION
  Report Type: 
  Country: None (occurrence: None)
  Receive Date: 20090508
  Receipt Date: 20090428
  Transmission Date: 20091009
  Serious: Yes (Death)
  Sender: FDA-Public Use
  Company Number: JP-BAYER-200910753BYL

PATIENT
  Age: 22 Year
  Sex: Male
  Weight: 50 kg

DRUGS (9)
  1. FLUDARA [Suspect]
     Indication: ACUTE MYELOID LEUKAEMIA
     Dosage: AS USED: 20 MG/M2  UNIT DOSE: 50 MG
     Route: 042
     Dates: start: 20081219, end: 20081219
  2. FLUDARA [Suspect]
     Dosage: AS USED: 25 MG/M2  UNIT DOSE: 50 MG
     Route: 042
     Dates: start: 20081220, end: 20081220
  3. FLUDARA [Suspect]
     Dosage: AS USED: 15 MG/M2  UNIT DOSE: 50 MG
     Route: 042
     Dates: start: 20081222, end: 20081224
  4. ALKERAN [Concomitant]
     Indication: ACUTE MYELOID LEUKAEMIA
     Dosage: AS USED: 40 MG/M2
     Route: 042
     Dates: start: 20081219, end: 20081219
  5. ALKERAN [Concomitant]
     Dosage: AS USED: 40 MG/M2
     Route: 042
     Dates: start: 20081222, end: 20081222
  6. ALKERAN [Concomitant]
     Dosage: AS USED: 40 MG/M2
     Route: 042
     Dates: start: 20081224, end: 20081224
  7. CONCENTRATED RED CELLS [Concomitant]
     Indication: PACKED RED BLOOD CELL TRANSFUSION
     Route: 042
     Dates: start: 20081219, end: 20090107
  8. PLATELETS [Concomitant]
     Indication: PLATELET TRANSFUSION
     Route: 042
     Dates: start: 20081219, end: 20090107
  9. FRESH FROZEN PLASMA [Concomitant]
     Indication: BLOOD PRODUCT TRANSFUSION
     Route: 042
     Dates: start: 20081226, end: 20090107

REACTIONS (3)
  - BACTERIAL INFECTION [None]
  - GASTROINTESTINAL HAEMORRHAGE [None]
  - SYSTEMIC CANDIDA [None]
